FAERS Safety Report 22306313 (Version 1)
Quarter: 2023Q2

REPORT INFORMATION
  Report Type: Spontaneous
  Country: US (occurrence: US)
  Receive Date: 20230511
  Receipt Date: 20230511
  Transmission Date: 20230722
  Serious: Yes (Other)
  Sender: FDA-Public Use
  Company Number: US-AMGEN-USASP2023076226

PATIENT
  Age: 81 Year
  Sex: Female
  Weight: 71.202 kg

DRUGS (2)
  1. PROLIA [Suspect]
     Active Substance: DENOSUMAB
     Indication: Bone disorder
     Dosage: UNK
     Route: 065
  2. DUPIXENT [Concomitant]
     Active Substance: DUPILUMAB

REACTIONS (12)
  - Intestinal obstruction [Unknown]
  - Glucose tolerance impaired [Unknown]
  - Weight increased [Unknown]
  - Nightmare [Recovered/Resolved]
  - Sitting disability [Unknown]
  - Gait disturbance [Unknown]
  - Anxiety [Recovered/Resolved]
  - Injection site pain [Unknown]
  - Asthenia [Unknown]
  - Fatigue [Unknown]
  - Dizziness [Unknown]
  - Constipation [Not Recovered/Not Resolved]
